FAERS Safety Report 15491299 (Version 2)
Quarter: 2018Q4

REPORT INFORMATION
  Report Type: Spontaneous
  Country: US (occurrence: US)
  Receive Date: 20181012
  Receipt Date: 20181016
  Transmission Date: 20190205
  Serious: Yes (Death)
  Sender: FDA-Public Use
  Company Number: US-ROCHE-2198223

PATIENT
  Age: 76 Year
  Sex: Female

DRUGS (1)
  1. CELLCEPT [Suspect]
     Active Substance: MYCOPHENOLATE MOFETIL\MYCOPHENOLATE MOFETIL HYDROCHLORIDE
     Indication: RENAL TRANSPLANT
     Dosage: CAPLET
     Route: 048
     Dates: start: 20021213, end: 20180821

REACTIONS (1)
  - Death [Fatal]

NARRATIVE: CASE EVENT DATE: 20180821
